FAERS Safety Report 25714528 (Version 2)
Quarter: 2025Q3

REPORT INFORMATION
  Report Type: Report from Study
  Country: CA (occurrence: CA)
  Receive Date: 20250822
  Receipt Date: 20250826
  Transmission Date: 20251021
  Serious: Yes (Death, Other)
  Sender: TAKEDA
  Company Number: CA-TAKEDA-2025TUS074341

PATIENT
  Age: 76 Year
  Sex: Female

DRUGS (8)
  1. VEDOLIZUMAB [Suspect]
     Active Substance: VEDOLIZUMAB
     Indication: Colitis ulcerative
     Dates: start: 20180604, end: 20250702
  2. IMURAN [Concomitant]
     Active Substance: AZATHIOPRINE
     Dosage: 100 MILLIGRAM, QD
     Dates: start: 20180303
  3. MESALAMINE [Concomitant]
     Active Substance: MESALAMINE
     Dosage: 4.8 GRAM, QD
     Dates: start: 20180502
  4. Cortiment [Concomitant]
     Dosage: 9 MILLIGRAM, QD
     Dates: start: 20180303
  5. PERINDOPRIL [Concomitant]
     Active Substance: PERINDOPRIL
     Indication: Hypertension
     Dosage: 8 MILLIGRAM, QD
  6. ASPIRIN [Concomitant]
     Active Substance: ASPIRIN
     Indication: Anticoagulant therapy
     Dosage: 80 MILLIGRAM, QD
  7. SYNTHROID [Concomitant]
     Active Substance: LEVOTHYROXINE SODIUM
     Dosage: 0.015 MILLIGRAM, QD
  8. HYDROCHLOROTHIAZIDE [Concomitant]
     Active Substance: HYDROCHLOROTHIAZIDE
     Dosage: 12.5 MILLIGRAM, QD

REACTIONS (1)
  - Death [Fatal]

NARRATIVE: CASE EVENT DATE: 20250707
